FAERS Safety Report 7693143-0 (Version None)
Quarter: 2011Q3

REPORT INFORMATION
  Report Type: 
  Country: None (occurrence: None)
  Receive Date: 20110819
  Receipt Date: 20110816
  Transmission Date: 20111222
  Serious: Yes (Death, Other)
  Sender: FDA-Public Use
  Company Number: CN-PFIZER INC-2011187889

PATIENT
  Age: 68 Year
  Sex: Female

DRUGS (6)
  1. HEPARIN [Suspect]
     Dosage: UNK
  2. PLAVIX [Suspect]
     Dosage: UNK
  3. OMEPRAZOLE [Suspect]
     Dosage: UNK
  4. ACETYLSALICYLIC ACID [Suspect]
     Dosage: UNK
  5. TIROFIBAN [Suspect]
     Dosage: UNK
  6. LIPITOR [Suspect]
     Dosage: 80MG, DAILY

REACTIONS (6)
  - BLOOD PRESSURE DECREASED [None]
  - DIARRHOEA [None]
  - CEREBRAL HAEMORRHAGE [None]
  - GASTROINTESTINAL HAEMORRHAGE [None]
  - NUCHAL RIGIDITY [None]
  - VOMITING [None]
